FAERS Safety Report 11079863 (Version 1)
Quarter: 2015Q2

REPORT INFORMATION
  Report Type: Spontaneous
  Country: IT (occurrence: IT)
  Receive Date: 20150430
  Receipt Date: 20150430
  Transmission Date: 20150821
  Serious: Yes (Life-Threatening)
  Sender: FDA-Public Use
  Company Number: IT-BAYER-2015-156650

PATIENT
  Age: 78 Year
  Sex: Female

DRUGS (10)
  1. COUMADIN [Suspect]
     Active Substance: WARFARIN SODIUM
     Indication: CEREBROVASCULAR ACCIDENT PROPHYLAXIS
     Dosage: 11,25MG/WEEK
     Route: 048
     Dates: start: 20091007, end: 20150323
  2. LEVODOPA W/BENSERAZIDE/ [Concomitant]
     Dosage: DAILY DOSE 750 MG
  3. MEPRAL [Concomitant]
     Active Substance: OMEPRAZOLE SODIUM
     Dosage: DAILY DOSE 40 MG
  4. TOTALIP [Concomitant]
     Active Substance: ATORVASTATIN
     Dosage: UNK
  5. CIPROXIN 500 MG FILM-COATED TABLETS [Suspect]
     Active Substance: CIPROFLOXACIN
     Indication: BRONCHITIS
     Dosage: DAILY DOSE 1 G
     Route: 048
     Dates: start: 20150317, end: 20150322
  6. LUVION [Concomitant]
     Active Substance: CANRENONE
     Dosage: UNK
  7. CITALOPRAM HYDROBROMIDE. [Concomitant]
     Active Substance: CITALOPRAM HYDROBROMIDE
     Dosage: DAILY DOSE 10 MG
  8. TAVOR [OXYBUTYNIN HYDROCHLORIDE] [Concomitant]
  9. SILYMARIN [Suspect]
     Active Substance: MILK THISTLE
     Indication: BRONCHITIS
     Dosage: DAILY DOSE 750 MG
     Route: 048
     Dates: start: 20150323, end: 20150324
  10. LASIX [Concomitant]
     Active Substance: FUROSEMIDE

REACTIONS (3)
  - Abdominal wall haematoma [Recovered/Resolved]
  - Arterial haemorrhage [Recovered/Resolved]
  - International normalised ratio increased [Recovered/Resolved]

NARRATIVE: CASE EVENT DATE: 20150324
